FAERS Safety Report 25622101 (Version 1)
Quarter: 2025Q3

REPORT INFORMATION
  Report Type: Spontaneous
  Country: EU (occurrence: EU)
  Receive Date: 20250730
  Receipt Date: 20250730
  Transmission Date: 20251020
  Serious: Yes (Life-Threatening, Other)
  Sender: BAYER HEALTHCARE PHARMACEUTICALS INC.
  Company Number: None

PATIENT
  Age: 41 Year
  Sex: Female
  Weight: 83 kg

DRUGS (1)
  1. KYLEENA [Suspect]
     Active Substance: LEVONORGESTREL
     Indication: Contraception
     Dosage: 17.5?G/DAY
     Route: 015
     Dates: start: 20220213, end: 20250515

REACTIONS (6)
  - Suicidal ideation [Recovered/Resolved]
  - Hyperthyroidism [Recovered/Resolved]
  - Mixed anxiety and depressive disorder [Recovered/Resolved]
  - Extrasystoles [Recovered/Resolved]
  - Weight increased [Recovered/Resolved]
  - Sleep disorder [Recovered/Resolved]

NARRATIVE: CASE EVENT DATE: 20221213
